FAERS Safety Report 5275529-7 (Version None)
Quarter: 2007Q1

REPORT INFORMATION
  Report Type: 
  Country: None (occurrence: None)
  Receive Date: 20070326
  Receipt Date: 20070315
  Transmission Date: 20070707
  Serious: Yes (Other)
  Sender: FDA-Public Use
  Company Number: PHBS2007RU03634

PATIENT
  Age: 70 Year
  Sex: Female

DRUGS (4)
  1. MIACALCIN [Suspect]
     Indication: OSTEOPOROSIS
     Dosage: UNK, ONCE/SINGLE
     Dates: start: 20070201, end: 20070201
  2. MONOPRIL [Concomitant]
     Indication: HYPERTENSION
  3. VENTOLIN [Concomitant]
     Indication: ASTHMA
  4. ALPHA D3 [Concomitant]
     Indication: OSTEOPOROSIS

REACTIONS (3)
  - ASTHMA [None]
  - COUGH [None]
  - SLEEP DISORDER [None]
